FAERS Safety Report 11166361 (Version 1)
Quarter: 2015Q2

REPORT INFORMATION
  Report Type: Spontaneous
  Country: US (occurrence: US)
  Receive Date: 20150605
  Receipt Date: 20150605
  Transmission Date: 20150821
  Serious: Yes (Other)
  Sender: FDA-Public Use
  Company Number: US-JNJFOC-20150511537

PATIENT
  Age: 64 Year
  Sex: Male

DRUGS (1)
  1. ZYTIGA [Suspect]
     Active Substance: ABIRATERONE ACETATE
     Indication: LIP AND/OR ORAL CAVITY CANCER
     Dosage: 250 MG X 4 TABLETS BY MOUTH DAILY ON AN EMPTY STOMACH
     Route: 048

REACTIONS (3)
  - Nasal congestion [Unknown]
  - Chest pain [Unknown]
  - Product use issue [Unknown]
